FAERS Safety Report 16484149 (Version 1)
Quarter: 2019Q3

REPORT INFORMATION
  Report Type: Spontaneous
  Country: US (occurrence: US)
  Receive Date: 20190625
  Receipt Date: 20190625
  Transmission Date: 20191004
  Serious: Yes (Other)
  Sender: FDA-Public Use
  Company Number: None

PATIENT
  Age: 75 Year
  Sex: Male
  Weight: 76.5 kg

DRUGS (10)
  1. NORTRIPTYLINE [Suspect]
     Active Substance: NORTRIPTYLINE
     Indication: DEPRESSION
     Dosage: ?          QUANTITY:1 CAPSULE(S);?
     Route: 048
     Dates: start: 20190623, end: 20190624
  2. LOVASTATIN. [Concomitant]
     Active Substance: LOVASTATIN
  3. ONE-A DAY MEN^S MULTIVITAMINS [Concomitant]
  4. NORTRIPTYLINE [Suspect]
     Active Substance: NORTRIPTYLINE
     Indication: ANXIETY
     Dosage: ?          QUANTITY:1 CAPSULE(S);?
     Route: 048
     Dates: start: 20190623, end: 20190624
  5. TRIAMTERENE. [Concomitant]
     Active Substance: TRIAMTERENE
  6. HYDROCHLOROTHIAZIDE. [Concomitant]
     Active Substance: HYDROCHLOROTHIAZIDE
  7. KONDREMUL OIL [Concomitant]
  8. AMLODIPINE [Concomitant]
     Active Substance: AMLODIPINE BESYLATE
  9. OMEGA 3 FISH OIL [Concomitant]
     Active Substance: FISH OIL\OMEGA-3 FATTY ACIDS
  10. NIACIN. [Concomitant]
     Active Substance: NIACIN

REACTIONS (3)
  - Anaphylactoid reaction [None]
  - Product formulation issue [None]
  - Allergic reaction to excipient [None]

NARRATIVE: CASE EVENT DATE: 20190623
